FAERS Safety Report 11702889 (Version 1)
Quarter: 2015Q4

REPORT INFORMATION
  Report Type: Spontaneous
  Country: JP (occurrence: JP)
  Receive Date: 20151105
  Receipt Date: 20151105
  Transmission Date: 20160304
  Serious: Yes (Death)
  Sender: FDA-Public Use
  Company Number: JP-MALLINCKRODT-T201505071

PATIENT
  Age: 46 Year
  Sex: Female
  Weight: 82 kg

DRUGS (11)
  1. METHADONE [Suspect]
     Active Substance: METHADONE HYDROCHLORIDE
     Indication: CANCER PAIN
     Dosage: 5 MG, (15 MG DAILY DOSE)
     Route: 048
     Dates: start: 20150428, end: 20150515
  2. OXINORM [Concomitant]
     Active Substance: OXYCODONE HYDROCHLORIDE
     Indication: ANALGESIC THERAPY
     Dosage: 5 MG, PRN
     Route: 048
     Dates: start: 20150427
  3. HYDREA [Concomitant]
     Active Substance: HYDROXYUREA
     Indication: ACUTE MYELOID LEUKAEMIA
     Dosage: 3000 MG
     Route: 048
     Dates: start: 20150330, end: 20150627
  4. PHELLOBERIN [Concomitant]
     Active Substance: BERBERINE\GERANIUM
     Dosage: 6 DF
     Route: 048
     Dates: end: 20150602
  5. METHADONE [Suspect]
     Active Substance: METHADONE HYDROCHLORIDE
     Dosage: 10 MG, (30 MG DAILY DOSE)
     Route: 048
     Dates: start: 20150515, end: 20150627
  6. SENNOSIDE [Concomitant]
     Active Substance: SENNOSIDES
     Dosage: 24 MG
     Route: 048
     Dates: start: 20150510, end: 20150602
  7. TAKEPRON [Concomitant]
     Active Substance: LANSOPRAZOLE
     Dosage: 30 MG
     Route: 048
     Dates: end: 20150627
  8. MAGMITT [Concomitant]
     Active Substance: MAGNESIUM OXIDE
     Dosage: 1500 MG
     Route: 048
     Dates: start: 20150510, end: 20150602
  9. BROTIZOLAM [Concomitant]
     Active Substance: BROTIZOLAM
     Dosage: 0.25 MG
     Route: 048
     Dates: end: 20150627
  10. EPADEL [Concomitant]
     Active Substance: ICOSAPENT
     Dosage: 1800 MG
     Route: 048
     Dates: end: 20150627
  11. LOPEMIN [Concomitant]
     Active Substance: LOPERAMIDE HYDROCHLORIDE
     Dosage: 2 MG
     Route: 048
     Dates: end: 20150627

REACTIONS (1)
  - Acute myeloid leukaemia [Fatal]
